FAERS Safety Report 5330450-0 (Version None)
Quarter: 2007Q2

REPORT INFORMATION
  Report Type: 
  Country: None (occurrence: None)
  Receive Date: 20070514
  Receipt Date: 20070501
  Transmission Date: 20071010
  Serious: Yes (Hospitalization)
  Sender: FDA-Public Use
  Company Number: B0469957A

PATIENT
  Age: 32 Year
  Sex: Female

DRUGS (1)
  1. PAXIL [Suspect]

REACTIONS (3)
  - ECCHYMOSIS [None]
  - EXTRAVASATION [None]
  - SKIN LESION [None]
